FAERS Safety Report 8782637 (Version 2)
Quarter: 2012Q4

REPORT INFORMATION
  Report Type: 
  Country: CH (occurrence: CH)
  Receive Date: 20120913
  Receipt Date: 20121127
  Transmission Date: 20130627
  Serious: Yes (Death)
  Sender: FDA-Public Use
  Company Number: CH-GLAXOSMITHKLINE-B0830175A

PATIENT
  Age: 57 Year
  Sex: Male

DRUGS (1)
  1. ARZERRA [Suspect]
     Indication: CHRONIC LYMPHOCYTIC LEUKAEMIA
     Dosage: 2000MG Cyclic
     Route: 042
     Dates: start: 201109, end: 20120827

REACTIONS (4)
  - Sepsis [Fatal]
  - Multi-organ failure [Fatal]
  - Chronic lymphocytic leukaemia [Fatal]
  - Disease progression [Fatal]
